FAERS Safety Report 23330644 (Version 6)
Quarter: 2024Q3

REPORT INFORMATION
  Report Type: Spontaneous
  Country: US (occurrence: US)
  Receive Date: 20231222
  Receipt Date: 20240921
  Transmission Date: 20241017
  Serious: Yes (Other)
  Sender: NOVARTIS
  Company Number: US-002147023-NVSC2023US271538

PATIENT
  Sex: Female

DRUGS (2)
  1. PROMACTA [Suspect]
     Active Substance: ELTROMBOPAG OLAMINE
     Indication: Immune thrombocytopenia
     Dosage: 12.5 MG, QD
     Route: 048
     Dates: start: 202311
  2. PROMACTA [Suspect]
     Active Substance: ELTROMBOPAG OLAMINE
     Dosage: 12.5 MG, QD
     Route: 048
     Dates: start: 202401

REACTIONS (4)
  - Cataract [Unknown]
  - Thrombosis [Unknown]
  - Pain in extremity [Unknown]
  - Gout [Unknown]
